FAERS Safety Report 8575878-0 (Version None)
Quarter: 2012Q2

REPORT INFORMATION
  Report Type: 
  Country: None (occurrence: None)
  Receive Date: 20120423
  Receipt Date: 20100830
  Transmission Date: 20120825
  Serious: Yes (Other)
  Sender: FDA-Public Use
  Company Number: PHHY2010US57516

PATIENT
  Sex: Male
  Weight: 61.2 kg

DRUGS (1)
  1. EXJADE [Suspect]
     Dosage: 1875 MG/DAY, ORAL
     Route: 048
     Dates: start: 20090625

REACTIONS (2)
  - CREATININE RENAL CLEARANCE DECREASED [None]
  - TREATMENT NONCOMPLIANCE [None]
